FAERS Safety Report 4775316-X (Version None)
Quarter: 2005Q3

REPORT INFORMATION
  Report Type: 
  Country: None (occurrence: None)
  Receive Date: 20050914
  Receipt Date: 20050531
  Transmission Date: 20060218
  Serious: Yes (Hospitalization)
  Sender: FDA-Public Use
  Company Number: S05-USA-02813-01

PATIENT
  Age: 53 Year
  Sex: Female

DRUGS (5)
  1. LEXAPRO [Suspect]
     Indication: ANXIETY
     Dosage: 10 MG ONCE PO
     Route: 048
     Dates: start: 20050525, end: 20050525
  2. LEXAPRO [Suspect]
     Indication: DEPRESSION
     Dosage: 10 MG ONCE PO
     Route: 048
     Dates: start: 20050525, end: 20050525
  3. LANTUS [Concomitant]
  4. GLIPIZIDE [Concomitant]
  5. DIOVAN [Concomitant]

REACTIONS (5)
  - ANXIETY [None]
  - DECREASED APPETITE [None]
  - HEADACHE [None]
  - LETHARGY [None]
  - NAUSEA [None]
